FAERS Safety Report 7962723-7 (Version None)
Quarter: 2011Q4

REPORT INFORMATION
  Report Type: 
  Country: None (occurrence: None)
  Receive Date: 20111207
  Receipt Date: 20111129
  Transmission Date: 20120403
  Serious: Yes (Hospitalization)
  Sender: FDA-Public Use
  Company Number: US-ASTRAZENECA-2011SE72402

PATIENT
  Age: 45 Year
  Sex: Female
  Weight: 65.8 kg

DRUGS (1)
  1. SEROQUEL [Suspect]
     Indication: BIPOLAR DISORDER
     Dosage: 400 MG AT NIGHT AND 50 TO 100 MG IN THE MORNING
     Route: 048

REACTIONS (7)
  - PALPITATIONS [None]
  - MALAISE [None]
  - FEELING ABNORMAL [None]
  - DRUG DOSE OMISSION [None]
  - INSOMNIA [None]
  - INCORRECT DOSE ADMINISTERED [None]
  - IRRITABILITY [None]
